FAERS Safety Report 16856864 (Version 2)
Quarter: 2019Q4

REPORT INFORMATION
  Report Type: Spontaneous
  Country: US (occurrence: US)
  Receive Date: 20190926
  Receipt Date: 20191031
  Transmission Date: 20200122
  Serious: No
  Sender: FDA-Public Use
  Company Number: US-JNJFOC-20190912917

PATIENT
  Age: 53 Year
  Sex: Male
  Weight: 99.88 kg

DRUGS (1)
  1. TREMFYA [Suspect]
     Active Substance: GUSELKUMAB
     Indication: PSORIASIS
     Route: 058
     Dates: start: 20190508

REACTIONS (4)
  - Product dose omission [Not Recovered/Not Resolved]
  - Product packaging issue [Unknown]
  - Accidental exposure to product [Recovered/Resolved]
  - Injection site bruising [Recovering/Resolving]

NARRATIVE: CASE EVENT DATE: 20190904
